FAERS Safety Report 4959626-9 (Version None)
Quarter: 2006Q1

REPORT INFORMATION
  Report Type: 
  Country: None (occurrence: None)
  Receive Date: 20060328
  Receipt Date: 20060131
  Transmission Date: 20060701
  Serious: Yes (Hospitalization)
  Sender: FDA-Public Use
  Company Number: 2006-137976-NL

PATIENT
  Age: 38 Year
  Sex: Female
  Weight: 54.4 kg

DRUGS (2)
  1. NUVARING [Suspect]
     Indication: CONTRACEPTION
     Dosage: VAGINAL
     Route: 067
     Dates: start: 20040201
  2. NUVARING [Suspect]
     Indication: MENSTRUAL DISORDER
     Dosage: VAGINAL
     Route: 067
     Dates: start: 20040201

REACTIONS (1)
  - CEREBROVASCULAR ACCIDENT [None]
